FAERS Safety Report 11468964 (Version 6)
Quarter: 2018Q2

REPORT INFORMATION
  Report Type: Report from Study
  Country: JP (occurrence: JP)
  Receive Date: 20150908
  Receipt Date: 20180507
  Transmission Date: 20180711
  Serious: Yes (Hospitalization, Other)
  Sender: FDA-Public Use
  Company Number: JP-ACTELION-A-CH2015-121128

PATIENT
  Age: 64 Year
  Sex: Female

DRUGS (15)
  1. EPOPROSTENOL ACT [Suspect]
     Active Substance: EPOPROSTENOL
     Dosage: 23 NG/KG, PER MIN
     Route: 042
     Dates: start: 20150901
  2. REVATIO [Suspect]
     Active Substance: SILDENAFIL CITRATE
     Indication: PULMONARY ARTERIAL HYPERTENSION
     Dosage: 20 MG, TID
     Route: 048
     Dates: start: 20120515, end: 20150514
  3. OXYGEN. [Concomitant]
     Active Substance: OXYGEN
  4. SAMSCA [Concomitant]
     Active Substance: TOLVAPTAN
  5. DIART [Concomitant]
     Active Substance: AZOSEMIDE
  6. TRACLEER [Suspect]
     Active Substance: BOSENTAN
     Indication: PULMONARY ARTERIAL HYPERTENSION
     Dosage: 125 MG, QD
     Route: 048
     Dates: start: 20120515, end: 20150514
  7. OPSUMIT [Concomitant]
     Active Substance: MACITENTAN
  8. EPOPROSTENOL ACT [Suspect]
     Active Substance: EPOPROSTENOL
     Dosage: 23 NG/KG, PER MIN
     Route: 042
     Dates: start: 20150703
  9. AMLODIN [Concomitant]
     Active Substance: AMLODIPINE BESYLATE
  10. MICARDIS [Concomitant]
     Active Substance: TELMISARTAN
  11. EPOPROSTENOL ACT [Suspect]
     Active Substance: EPOPROSTENOL
     Dosage: 19 NG/KG, PER MIN
     Route: 042
     Dates: start: 20150109, end: 20150430
  12. PARIET [Concomitant]
     Active Substance: RABEPRAZOLE SODIUM
  13. EPOPROSTENOL ACT [Suspect]
     Active Substance: EPOPROSTENOL
     Indication: PULMONARY ARTERIAL HYPERTENSION
     Dosage: 23 NG/KG, PER MIN
     Route: 042
     Dates: start: 20150501
  14. EPOPROSTENOL ACT [Suspect]
     Active Substance: EPOPROSTENOL
     Dosage: 15 NG/KG, PER MIN
     Route: 042
     Dates: start: 20140605, end: 20150108
  15. EPOPROSTENOL ACT [Suspect]
     Active Substance: EPOPROSTENOL
     Dosage: 23 NG/KG, PER MIN
     Route: 042
     Dates: start: 20151009

REACTIONS (7)
  - Gastrointestinal endoscopic therapy [Unknown]
  - Platelet count decreased [Not Recovered/Not Resolved]
  - Anaemia [Recovered/Resolved]
  - Gastric cancer [Recovered/Resolved]
  - Arterial haemorrhage [Recovered/Resolved]
  - Neutropenia [Recovered/Resolved]
  - Haematemesis [Recovered/Resolved]

NARRATIVE: CASE EVENT DATE: 20150514
